FAERS Safety Report 5408520-8 (Version None)
Quarter: 2007Q3

REPORT INFORMATION
  Report Type: 
  Country: None (occurrence: None)
  Receive Date: 20070808
  Receipt Date: 20070801
  Transmission Date: 20080115
  Serious: Yes (Hospitalization)
  Sender: FDA-Public Use
  Company Number: FR-ABBOTT-07P-056-0376387-00

PATIENT
  Age: 62 Year
  Sex: Female

DRUGS (1)
  1. LIPANTHYL [Suspect]
     Indication: DYSLIPIDAEMIA
     Route: 048
     Dates: start: 19970101, end: 20070710

REACTIONS (3)
  - NORMOCHROMIC NORMOCYTIC ANAEMIA [None]
  - PRURITUS [None]
  - SCLERODERMA [None]
